FAERS Safety Report 6730422-5 (Version None)
Quarter: 2010Q2

REPORT INFORMATION
  Report Type: 
  Country: None (occurrence: None)
  Receive Date: 20100518
  Receipt Date: 20100514
  Transmission Date: 20101027
  Serious: Yes (Hospitalization)
  Sender: FDA-Public Use
  Company Number: B0623251A

PATIENT
  Sex: Female
  Weight: 89.9 kg

DRUGS (3)
  1. LAPATINIB [Suspect]
     Indication: BREAST CANCER
     Dosage: 1000MG PER DAY
     Route: 048
     Dates: start: 20091110
  2. PACLITAXEL [Suspect]
     Indication: BREAST CANCER
     Dosage: 80MGM2 PER DAY
     Route: 042
     Dates: start: 20091110
  3. TRASTUZUMAB [Suspect]
     Indication: BREAST CANCER
     Dosage: 2MGK PER DAY
     Route: 042
     Dates: start: 20091110

REACTIONS (6)
  - DEHYDRATION [None]
  - DIARRHOEA [None]
  - FIBULA FRACTURE [None]
  - PYREXIA [None]
  - SYNCOPE [None]
  - VOMITING [None]
